FAERS Safety Report 23994879 (Version 2)
Quarter: 2024Q2

REPORT INFORMATION
  Report Type: Spontaneous
  Country: US (occurrence: US)
  Receive Date: 20240620
  Receipt Date: 20240624
  Transmission Date: 20240716
  Serious: Yes (Death, Other)
  Sender: FDA-Public Use
  Company Number: US-PFIZER INC-PV202400080317

PATIENT

DRUGS (2)
  1. KETAMINE HYDROCHLORIDE [Suspect]
     Active Substance: KETAMINE HYDROCHLORIDE
     Indication: Cardiogenic shock
     Dosage: 250 MG
     Route: 042
     Dates: start: 20240318
  2. SODIUM CHLORIDE [Concomitant]
     Active Substance: SODIUM CHLORIDE
     Indication: Cardiogenic shock
     Dosage: 250 ML
     Dates: start: 20240318

REACTIONS (3)
  - Ventricular tachycardia [Fatal]
  - Shock [Fatal]
  - Off label use [Unknown]

NARRATIVE: CASE EVENT DATE: 20240318
